FAERS Safety Report 9884000 (Version 2)
Quarter: 2014Q1

REPORT INFORMATION
  Report Type: Spontaneous
  Country: US (occurrence: US)
  Receive Date: 20140210
  Receipt Date: 20140210
  Transmission Date: 20141002
  Serious: No
  Sender: FDA-Public Use
  Company Number: US-ALLERGAN-1316981US

PATIENT
  Age: 52 Year
  Sex: Female

DRUGS (2)
  1. BOTOX COSMETIC [Suspect]
     Indication: SKIN WRINKLING
     Dosage: UNK, SINGLE
     Route: 030
     Dates: start: 20131021, end: 20131021
  2. ABILIFY [Concomitant]
     Indication: PRODUCT USED FOR UNKNOWN INDICATION
     Dosage: UNK
     Dates: start: 20131017

REACTIONS (8)
  - Injection site reaction [Recovered/Resolved]
  - Influenza like illness [Recovering/Resolving]
  - Influenza like illness [Recovering/Resolving]
  - Off label use [Unknown]
  - Paraesthesia [Recovering/Resolving]
  - Paraesthesia [Recovering/Resolving]
  - Diarrhoea [Recovering/Resolving]
  - Eyelid ptosis [Recovered/Resolved]
